FAERS Safety Report 4850859-9 (Version None)
Quarter: 2005Q4

REPORT INFORMATION
  Report Type: 
  Country: None (occurrence: None)
  Receive Date: 20051208
  Receipt Date: 20051128
  Transmission Date: 20060501
  Serious: Yes (Hospitalization, Disabling, Other)
  Sender: FDA-Public Use
  Company Number: 2005160231

PATIENT
  Age: 66 Year
  Sex: Female

DRUGS (4)
  1. ALPRAZOLAM [Suspect]
     Indication: INSOMNIA
     Dosage: 1 MG (1 MG, 1 IN 1 D), ORAL
     Route: 048
  2. SYNTHROID [Concomitant]
  3. CERILIN (PAROXETINE HYDROCHLORIDE) [Concomitant]
  4. PRIMIDONE [Concomitant]

REACTIONS (8)
  - ACCIDENT [None]
  - DECREASED ACTIVITY [None]
  - DRUG INEFFECTIVE [None]
  - FALL [None]
  - FEMUR FRACTURE [None]
  - PHARMACEUTICAL PRODUCT COMPLAINT [None]
  - POOR QUALITY DRUG ADMINISTERED [None]
  - THERAPY REGIMEN CHANGED [None]
